FAERS Safety Report 12900678 (Version 1)
Quarter: 2016Q4

REPORT INFORMATION
  Report Type: Spontaneous
  Country: US (occurrence: US)
  Receive Date: 20161101
  Receipt Date: 20161101
  Transmission Date: 20170207
  Serious: No
  Sender: FDA-Public Use
  Company Number: US-AMGEN-USASP2016137096

PATIENT

DRUGS (1)
  1. IMLYGIC [Suspect]
     Active Substance: TALIMOGENE LAHERPAREPVEC
     Indication: PRODUCT USED FOR UNKNOWN INDICATION
     Dosage: 106 UNK, 106 DOSE, 4CC INJECTION FROM SINGLE USE VIAL)
     Route: 065
     Dates: start: 20161004

REACTIONS (3)
  - Injection site haemorrhage [Unknown]
  - Injection site discharge [Unknown]
  - Underdose [Unknown]

NARRATIVE: CASE EVENT DATE: 20161004
